FAERS Safety Report 7432046-3 (Version None)
Quarter: 2011Q2

REPORT INFORMATION
  Report Type: 
  Country: None (occurrence: None)
  Receive Date: 20110422
  Receipt Date: 20110415
  Transmission Date: 20111010
  Serious: Yes (Death, Hospitalization)
  Sender: FDA-Public Use
  Company Number: TR-BRISTOL-MYERS SQUIBB COMPANY-15666936

PATIENT
  Age: 21 Year
  Sex: Female

DRUGS (6)
  1. CIPROFLOXACIN [Suspect]
  2. MEROPENEM [Suspect]
  3. TRIMETHOPRIM [Suspect]
     Route: 042
  4. COTRIM [Suspect]
     Indication: PROPHYLAXIS
  5. WARFARIN SODIUM [Suspect]
  6. TEICOPLANIN [Suspect]

REACTIONS (4)
  - HEPATIC FAILURE [None]
  - UPPER GASTROINTESTINAL HAEMORRHAGE [None]
  - CARDIO-RESPIRATORY ARREST [None]
  - RENAL FAILURE [None]
